FAERS Safety Report 17637964 (Version 1)
Quarter: 2020Q2

REPORT INFORMATION
  Report Type: Spontaneous
  Country: GB (occurrence: GB)
  Receive Date: 20200407
  Receipt Date: 20200407
  Transmission Date: 20200713
  Serious: Yes (Other)
  Sender: FDA-Public Use
  Company Number: GB-PFIZER INC-2020138987

PATIENT
  Age: 30 Year
  Sex: Male

DRUGS (9)
  1. ZOPICLONE [Suspect]
     Active Substance: ZOPICLONE
     Route: 065
  2. LEVETIRACETAM. [Suspect]
     Active Substance: LEVETIRACETAM
     Route: 065
  3. SERTRALINE HCL [Suspect]
     Active Substance: SERTRALINE HYDROCHLORIDE
     Dosage: UNK
     Route: 065
  4. VENTOLINE [SALBUTAMOL] [Suspect]
     Active Substance: ALBUTEROL SULFATE
     Route: 065
  5. DIAZEPAM. [Suspect]
     Active Substance: DIAZEPAM
     Route: 065
  6. CODEINE [Suspect]
     Active Substance: CODEINE
     Route: 065
  7. AMPHETAMINE [Suspect]
     Active Substance: AMPHETAMINE
  8. AMISULPRIDE [Suspect]
     Active Substance: AMISULPRIDE
     Route: 065
  9. DEXEDRINE [Suspect]
     Active Substance: DEXTROAMPHETAMINE SULFATE
     Route: 065

REACTIONS (5)
  - Drug dependence [Unknown]
  - Depression [Unknown]
  - Euphoric mood [Unknown]
  - Depressed mood [Unknown]
  - Energy increased [Unknown]
